FAERS Safety Report 5897579-X (Version None)
Quarter: 2008Q3

REPORT INFORMATION
  Report Type: 
  Country: None (occurrence: None)
  Receive Date: 20080829
  Receipt Date: 20080520
  Transmission Date: 20090109
  Serious: Yes (Hospitalization)
  Sender: FDA-Public Use
  Company Number: PHEH2008US04468

PATIENT
  Age: 81 Year
  Sex: Male
  Weight: 96 kg

DRUGS (11)
  1. EXJADE [Suspect]
     Indication: IRON OVERLOAD
     Dosage: 1875 MG/DAILY, ORAL ; 2250 MG/DAILY, ORAL ; 2500 MG/DAILY, ORAL ; 2500 MG DAILY, ORAL
     Route: 048
     Dates: start: 20080301, end: 20080506
  2. EXJADE [Suspect]
     Indication: IRON OVERLOAD
     Dosage: 1875 MG/DAILY, ORAL ; 2250 MG/DAILY, ORAL ; 2500 MG/DAILY, ORAL ; 2500 MG DAILY, ORAL
     Route: 048
     Dates: start: 20070918
  3. EXJADE [Suspect]
     Indication: IRON OVERLOAD
     Dosage: 1875 MG/DAILY, ORAL ; 2250 MG/DAILY, ORAL ; 2500 MG/DAILY, ORAL ; 2500 MG DAILY, ORAL
     Route: 048
     Dates: start: 20071101
  4. POTASSIUM (POTASSIUM) [Concomitant]
  5. LASIX [Concomitant]
  6. DETROL [Concomitant]
  7. TOPROL-XL [Concomitant]
  8. PROTONIX [Concomitant]
  9. AMIODARONE HCL [Concomitant]
  10. CIPRO [Concomitant]
  11. CLARITIN [Concomitant]

REACTIONS (13)
  - ALANINE AMINOTRANSFERASE INCREASED [None]
  - ASPARTATE AMINOTRANSFERASE INCREASED [None]
  - BLOOD ALBUMIN DECREASED [None]
  - BLOOD ALKALINE PHOSPHATASE INCREASED [None]
  - BLOOD BILIRUBIN INCREASED [None]
  - BLOOD CALCIUM DECREASED [None]
  - BLOOD CREATININE INCREASED [None]
  - BLOOD GLUCOSE INCREASED [None]
  - BLOOD UREA INCREASED [None]
  - CHOLELITHIASIS [None]
  - GLOMERULAR FILTRATION RATE DECREASED [None]
  - LIVER FUNCTION TEST ABNORMAL [None]
  - PROTEIN TOTAL DECREASED [None]
